FAERS Safety Report 21274284 (Version 4)
Quarter: 2023Q2

REPORT INFORMATION
  Report Type: Spontaneous
  Country: US (occurrence: US)
  Receive Date: 20220831
  Receipt Date: 20230623
  Transmission Date: 20230721
  Serious: Yes (Other)
  Sender: FDA-Public Use
  Company Number: US-AMERICAN REGENT INC-2022002500

PATIENT
  Age: 28 Year
  Sex: Female
  Weight: 71.9 kg

DRUGS (2)
  1. VENOFER [Suspect]
     Active Substance: IRON SUCROSE
     Indication: Iron deficiency anaemia
     Dosage: 400 MILLIGRAM (2 X 200 MG) IN 250 ML 0.9% SALINE
     Route: 042
     Dates: start: 20220712, end: 20220712
  2. VENOFER [Suspect]
     Active Substance: IRON SUCROSE
     Dosage: 100 MILLIGRAM (1 X 100 MG) IN 250 ML 0.9% SALINE
     Route: 042
     Dates: start: 20220712, end: 20220712

REACTIONS (5)
  - Fall [Recovered/Resolved]
  - Maternal exposure during pregnancy [Unknown]
  - Paraesthesia [Recovered/Resolved]
  - Chest discomfort [Recovered/Resolved]
  - Dyspnoea [Recovered/Resolved]

NARRATIVE: CASE EVENT DATE: 20220712
